FAERS Safety Report 8080029-5 (Version None)
Quarter: 2012Q1

REPORT INFORMATION
  Report Type: 
  Country: None (occurrence: None)
  Receive Date: 20120124
  Receipt Date: 20120109
  Transmission Date: 20120608
  Serious: Yes (Other)
  Sender: FDA-Public Use
  Company Number: 2012MA000556

PATIENT
  Age: 41 Year
  Sex: Female

DRUGS (5)
  1. ATAZANAVIR [Suspect]
     Indication: HIV INFECTION
  2. LAMIVUDINE [Suspect]
     Indication: HIV INFECTION
  3. TENOFOVIR DISOPROSIL FUMARATE (VIREAD) [Suspect]
     Indication: HIV INFECTION
  4. RITONAVIR [Suspect]
     Indication: HIV INFECTION
  5. TRIAMCINOLONE ACETONIDE [Suspect]
     Indication: DERMATITIS
     Dosage: 60 MG; X1; IM
     Route: 030

REACTIONS (4)
  - BLOOD PRESSURE DECREASED [None]
  - SECONDARY ADRENOCORTICAL INSUFFICIENCY [None]
  - CUSHING'S SYNDROME [None]
  - ADRENAL SUPPRESSION [None]
